FAERS Safety Report 9216331 (Version 8)
Quarter: 2019Q3

REPORT INFORMATION
  Report Type: Report from Study
  Country: BE (occurrence: BE)
  Receive Date: 20130408
  Receipt Date: 20190916
  Transmission Date: 20191005
  Serious: Yes (Hospitalization)
  Sender: FDA-Public Use
  Company Number: PHHO2013BE004854

PATIENT

DRUGS (3)
  1. FUCICORT [Concomitant]
     Active Substance: BETAMETHASONE VALERATE\FUSIDIC ACID
     Indication: MOLLUSCUM CONTAGIOSUM
     Dosage: 15 G, PRN
     Route: 061
     Dates: start: 20130312
  2. ACZ885 [Suspect]
     Active Substance: CANAKINUMAB
     Indication: CRYOPYRIN ASSOCIATED PERIODIC SYNDROME
     Dosage: 10 MG/KG, UNK
     Route: 058
     Dates: start: 20121219
  3. VERMOX [Concomitant]
     Active Substance: MEBENDAZOLE
     Indication: ENTEROBIASIS
     Dosage: 100 MG, BID
     Route: 048
     Dates: start: 20120312

REACTIONS (1)
  - Pneumonia [Recovered/Resolved]

NARRATIVE: CASE EVENT DATE: 20130331
